FAERS Safety Report 10093281 (Version 1)
Quarter: 2014Q2

REPORT INFORMATION
  Report Type: Spontaneous
  Country: US (occurrence: US)
  Receive Date: 20140421
  Receipt Date: 20140421
  Transmission Date: 20141212
  Serious: Yes (Hospitalization)
  Sender: FDA-Public Use
  Company Number: US-SANOFI-AVENTIS-2013SA055704

PATIENT
  Age: 50 Year
  Sex: Female

DRUGS (1)
  1. ALLEGRA [Suspect]

REACTIONS (4)
  - Urticaria [Unknown]
  - Throat tightness [Unknown]
  - Eye irritation [Unknown]
  - Pain in extremity [Unknown]
